FAERS Safety Report 5356900-1 (Version None)
Quarter: 2007Q2

REPORT INFORMATION
  Report Type: 
  Country: None (occurrence: None)
  Receive Date: 20070614
  Receipt Date: 20061024
  Transmission Date: 20071010
  Serious: No
  Sender: FDA-Public Use
  Company Number: US-ASTRAZENECA-2006UW20444

PATIENT
  Sex: Male

DRUGS (6)
  1. ATACAND HCT [Suspect]
     Dosage: 32/12.5
     Route: 048
  2. TOPROL-XL [Suspect]
     Route: 048
  3. CLOPIDOGREL [Concomitant]
  4. CLONIDINE [Concomitant]
  5. LISINOPRIL [Concomitant]
  6. POTASSIUM ACETATE [Concomitant]

REACTIONS (2)
  - BACK DISORDER [None]
  - BLOOD PRESSURE ABNORMAL [None]
